FAERS Safety Report 24842690 (Version 1)
Quarter: 2025Q1

REPORT INFORMATION
  Report Type: Spontaneous
  Country: US (occurrence: US)
  Receive Date: 20250115
  Receipt Date: 20250115
  Transmission Date: 20250409
  Serious: Yes (Hospitalization)
  Sender: NOVO NORDISK
  Company Number: US-NOVOPROD-1348565

PATIENT
  Age: 82 Year
  Sex: Female

DRUGS (1)
  1. NOVOLOG [Suspect]
     Active Substance: INSULIN ASPART
     Indication: Product used for unknown indication
     Route: 058

REACTIONS (3)
  - Bacterial infection [Unknown]
  - Biofeedback therapy [Unknown]
  - Diabetes mellitus inadequate control [Unknown]
